FAERS Safety Report 22142229 (Version 1)
Quarter: 2023Q1

REPORT INFORMATION
  Report Type: Spontaneous
  Country: CA (occurrence: CA)
  Receive Date: 20230327
  Receipt Date: 20230327
  Transmission Date: 20230417
  Serious: Yes (Other)
  Sender: FDA-Public Use
  Company Number: CA-PFIZER INC-202300128947

PATIENT
  Age: 17 Year
  Sex: Female

DRUGS (3)
  1. METHOTREXATE SODIUM [Suspect]
     Active Substance: METHOTREXATE SODIUM
     Dosage: 1 DF
     Dates: start: 2018
  2. INFLECTRA [Concomitant]
     Active Substance: INFLIXIMAB-DYYB
     Indication: Crohn^s disease
     Dosage: 700 MG, INDUCTION WEEK 2, 6. NO MAINTENANCE INDICATED. HOSPITAL START
     Dates: start: 20230317
  3. PREDNISONE [Concomitant]
     Active Substance: PREDNISONE
     Dosage: 1 DF

REACTIONS (4)
  - Rectal haemorrhage [Unknown]
  - Anaemia [Unknown]
  - Abdominal pain [Unknown]
  - Diarrhoea [Unknown]
